FAERS Safety Report 9817251 (Version 1)
Quarter: 2014Q1

REPORT INFORMATION
  Report Type: Report from Study
  Country: US (occurrence: US)
  Receive Date: 20140115
  Receipt Date: 20140115
  Transmission Date: 20141002
  Serious: Yes (Other)
  Sender: FDA-Public Use
  Company Number: US-ROCHE-1328563

PATIENT
  Age: 85 Year
  Sex: Female
  Weight: 72.64 kg

DRUGS (31)
  1. LUCENTIS [Suspect]
     Indication: AGE-RELATED MACULAR DEGENERATION
     Dosage: OD
     Route: 050
     Dates: start: 20091204
  2. LUCENTIS [Suspect]
     Dosage: OD
     Route: 050
     Dates: start: 20100611
  3. LUCENTIS [Suspect]
     Dosage: OD
     Route: 050
     Dates: start: 20100830
  4. LUCENTIS [Suspect]
     Dosage: OD
     Route: 050
     Dates: start: 20101217
  5. LUCENTIS [Suspect]
     Dosage: OD
     Route: 050
     Dates: start: 20110118
  6. LUCENTIS [Suspect]
     Dosage: OD
     Route: 050
     Dates: start: 20110412
  7. AVASTIN [Suspect]
     Indication: AGE-RELATED MACULAR DEGENERATION
     Dosage: OD
     Route: 050
     Dates: start: 20060607
  8. AVASTIN [Suspect]
     Dosage: OD
     Route: 050
     Dates: start: 20060719
  9. AVASTIN [Suspect]
     Dosage: OD
     Route: 050
     Dates: start: 20060830
  10. AVASTIN [Suspect]
     Route: 050
     Dates: start: 20070710
  11. AVASTIN [Suspect]
     Route: 050
     Dates: start: 20070529
  12. AVASTIN [Suspect]
     Route: 050
     Dates: start: 20070810
  13. AVASTIN [Suspect]
     Dosage: OD
     Route: 003
     Dates: start: 20070914
  14. AVASTIN [Suspect]
     Dosage: OD
     Route: 050
     Dates: start: 20071207
  15. AVASTIN [Suspect]
     Route: 050
     Dates: start: 20080125
  16. AVASTIN [Suspect]
     Route: 050
     Dates: start: 20080411
  17. AVASTIN [Suspect]
     Route: 050
     Dates: start: 20080516
  18. AVASTIN [Suspect]
     Route: 050
     Dates: start: 20080624
  19. AVASTIN [Suspect]
     Route: 050
     Dates: start: 20080811
  20. AVASTIN [Suspect]
     Route: 050
     Dates: start: 20081121
  21. AVASTIN [Suspect]
     Dosage: OD
     Route: 050
     Dates: start: 20090130
  22. AVASTIN [Suspect]
     Dosage: OD
     Route: 050
     Dates: start: 20090410
  23. AVASTIN [Suspect]
     Route: 050
     Dates: start: 20090612
  24. AVASTIN [Suspect]
     Dosage: OD
     Route: 050
     Dates: start: 20090724
  25. AVASTIN [Suspect]
     Dosage: OD
     Route: 042
     Dates: start: 20091009
  26. ASPIRIN [Concomitant]
     Route: 065
  27. FISH OIL [Concomitant]
     Route: 065
  28. FOSAMAX [Concomitant]
     Route: 065
  29. NIFEDIAC [Concomitant]
     Dosage: 24-TAB
     Route: 065
  30. PRAVASTATIN [Concomitant]
     Route: 065
  31. OCUVITE PRESERVISION [Concomitant]
     Dosage: 2 TABS
     Route: 065

REACTIONS (15)
  - Blindness [Unknown]
  - Visual acuity reduced [Unknown]
  - Retinal scar [Unknown]
  - Macular degeneration [Unknown]
  - Retinal degeneration [Unknown]
  - Retinal detachment [Unknown]
  - Periorbital contusion [Unknown]
  - Vision blurred [Unknown]
  - Age-related macular degeneration [Unknown]
  - Cataract nuclear [Unknown]
  - Intraocular lens implant [Unknown]
  - Cutis laxa [Unknown]
  - Retinal disorder [Unknown]
  - Cataract [Unknown]
  - Retinal depigmentation [Unknown]
